FAERS Safety Report 4374872-3 (Version None)
Quarter: 2004Q2

REPORT INFORMATION
  Report Type: 
  Country: None (occurrence: None)
  Receive Date: 20040602
  Receipt Date: 20031001
  Transmission Date: 20050107
  Serious: Yes (Other)
  Sender: FDA-Public Use
  Company Number: US-JNJFOC-20031004963

PATIENT
  Age: 25 Year
  Sex: Female
  Weight: 87.5442 kg

DRUGS (9)
  1. CISAPRIDE (CISAPRIDE) [Suspect]
     Indication: CONSTIPATION
     Dosage: SEE IMAGE
     Dates: start: 19971029, end: 19971101
  2. CISAPRIDE (CISAPRIDE) [Suspect]
     Indication: IMPAIRED GASTRIC EMPTYING
     Dosage: SEE IMAGE
     Dates: start: 19971029, end: 19971101
  3. CISAPRIDE (CISAPRIDE) [Suspect]
     Indication: CONSTIPATION
     Dosage: SEE IMAGE
     Dates: start: 19971201, end: 19971201
  4. CISAPRIDE (CISAPRIDE) [Suspect]
     Indication: IMPAIRED GASTRIC EMPTYING
     Dosage: SEE IMAGE
     Dates: start: 19971201, end: 19971201
  5. CISAPRIDE (CISAPRIDE) [Suspect]
     Indication: CONSTIPATION
     Dosage: SEE IMAGE
     Dates: start: 19971202, end: 20000208
  6. CISAPRIDE (CISAPRIDE) [Suspect]
     Indication: IMPAIRED GASTRIC EMPTYING
     Dosage: SEE IMAGE
     Dates: start: 19971202, end: 20000208
  7. TRIMETHOBENZAMINE (TRIMETHOBENZAMIDE) [Concomitant]
  8. ZITHROMAX [Concomitant]
  9. PREDNISONE TAB [Concomitant]

REACTIONS (9)
  - ABDOMINAL PAIN [None]
  - ABORTION SPONTANEOUS [None]
  - BIPOLAR II DISORDER [None]
  - BRONCHOSPASM [None]
  - DRUG EXPOSURE DURING PREGNANCY [None]
  - ELECTROCARDIOGRAM QT CORRECTED INTERVAL PROLONGED [None]
  - NAUSEA [None]
  - TREMOR [None]
  - VISION BLURRED [None]
